FAERS Safety Report 12782566 (Version 1)
Quarter: 2016Q3

REPORT INFORMATION
  Report Type: Spontaneous
  Country: US (occurrence: US)
  Receive Date: 20160926
  Receipt Date: 20160926
  Transmission Date: 20161109
  Serious: Yes (Other)
  Sender: FDA-Public Use
  Company Number: None

PATIENT
  Age: 26 Year
  Sex: Female
  Weight: 72 kg

DRUGS (1)
  1. TOPAMAX [Suspect]
     Active Substance: TOPIRAMATE
     Indication: MIGRAINE PROPHYLAXIS
     Route: 048
     Dates: start: 20160401, end: 20160818

REACTIONS (18)
  - Abdominal discomfort [None]
  - Conversion disorder [None]
  - Nausea [None]
  - Hyperhidrosis [None]
  - Anxiety [None]
  - Activities of daily living impaired [None]
  - Crying [None]
  - Insomnia [None]
  - Claustrophobia [None]
  - Palpitations [None]
  - Depersonalisation/derealisation disorder [None]
  - Fear of death [None]
  - Vomiting [None]
  - Panic attack [None]
  - Chest pain [None]
  - Paraesthesia [None]
  - Disturbance in attention [None]
  - Influenza like illness [None]

NARRATIVE: CASE EVENT DATE: 20160814
